FAERS Safety Report 23801098 (Version 2)
Quarter: 2024Q2

REPORT INFORMATION
  Report Type: Spontaneous
  Country: US (occurrence: US)
  Receive Date: 20240430
  Receipt Date: 20240501
  Transmission Date: 20240716
  Serious: Yes (Other)
  Sender: FDA-Public Use
  Company Number: US-SEATTLE GENETICS-2024SGN04960

PATIENT
  Sex: Female

DRUGS (1)
  1. TIVDAK [Suspect]
     Active Substance: TISOTUMAB VEDOTIN-TFTV
     Indication: Cervix carcinoma
     Dosage: INFUSED PRODUCT
     Route: 065

REACTIONS (5)
  - Malignant neoplasm progression [Unknown]
  - Neuropathy peripheral [Unknown]
  - Motor dysfunction [Unknown]
  - Fall [Unknown]
  - Gait disturbance [Unknown]
